FAERS Safety Report 6577898-4 (Version None)
Quarter: 2010Q1

REPORT INFORMATION
  Report Type: 
  Country: None (occurrence: None)
  Receive Date: 20100211
  Receipt Date: 20100205
  Transmission Date: 20100710
  Serious: Yes (Hospitalization)
  Sender: FDA-Public Use
  Company Number: ZA-ROCHE-684131

PATIENT
  Age: 16 Year
  Sex: Male

DRUGS (2)
  1. RIVOTRIL [Suspect]
     Indication: DRUG USE FOR UNKNOWN INDICATION
     Route: 065
  2. STILNOX [Suspect]
     Indication: DRUG USE FOR UNKNOWN INDICATION
     Dosage: FREQ: ONE
     Route: 048

REACTIONS (4)
  - AGGRESSION [None]
  - DISORIENTATION [None]
  - ILL-DEFINED DISORDER [None]
  - MUSCLE SPASMS [None]
